FAERS Safety Report 8595955-8 (Version None)
Quarter: 2012Q3

REPORT INFORMATION
  Report Type: 
  Country: None (occurrence: None)
  Receive Date: 20120815
  Receipt Date: 20120711
  Transmission Date: 20120928
  Serious: Yes (Other)
  Sender: FDA-Public Use
  Company Number: JP-B.I. PHARMACEUTICALS,INC./RIDGEFIELD-2012-BP-18953YA

PATIENT
  Age: 88 Year
  Sex: Male

DRUGS (6)
  1. SANCOBA (CYANOCOBALAMIN) [Concomitant]
  2. AVOLVE (DUTASTERIDE) [Concomitant]
     Dates: start: 20110615
  3. MUCOSTA (REBAMIPIDE) [Concomitant]
     Dates: start: 20110601
  4. AZOPT [Concomitant]
  5. TAMSULOSIN HYDROCHLORIDE [Suspect]
     Indication: BENIGN PROSTATIC HYPERPLASIA
     Dosage: 0.2 MG
     Route: 048
     Dates: start: 20110603
  6. DUOTRAV (TIMOLOL MALEATE, TRAVOPROST) [Concomitant]

REACTIONS (2)
  - DYSPHAGIA [None]
  - SALIVA ALTERED [None]
